FAERS Safety Report 9845052 (Version 2)
Quarter: 2014Q2

REPORT INFORMATION
  Report Type: Spontaneous
  Country: DE (occurrence: None)
  Receive Date: 20140122
  Receipt Date: 20140402
  Transmission Date: 20141212
  Serious: Yes (Other)
  Sender: FDA-Public Use
  Company Number: 1401-0113

PATIENT
  Sex: Male

DRUGS (2)
  1. EYLEA (AFLIBERCEPT) (INJECTION) [Suspect]
     Indication: AGE-RELATED MACULAR DEGENERATION
     Dosage: IN RIGHT EYE
     Dates: start: 20121114
  2. EYLEA (AFLIBERCEPT) (INJECTION) [Suspect]
     Indication: AGE-RELATED MACULAR DEGENERATION
     Dosage: IN RIGHT EYE
     Dates: start: 20121114

REACTIONS (6)
  - Visual acuity reduced [None]
  - Age-related macular degeneration [None]
  - Off label use [None]
  - Condition aggravated [None]
  - Age-related macular degeneration [None]
  - Drug ineffective [None]
